FAERS Safety Report 21777941 (Version 1)
Quarter: 2022Q4

REPORT INFORMATION
  Report Type: Spontaneous
  Country: US (occurrence: US)
  Receive Date: 20221226
  Receipt Date: 20221226
  Transmission Date: 20230113
  Serious: No
  Sender: FDA-Public Use
  Company Number: US-TAKEDA-2022TUS101098

PATIENT
  Age: 31 Year
  Sex: Male

DRUGS (1)
  1. VYVANSE [Suspect]
     Active Substance: LISDEXAMFETAMINE DIMESYLATE
     Indication: Narcolepsy
     Dosage: UNK UNK, QD
     Route: 065

REACTIONS (5)
  - Adverse drug reaction [Unknown]
  - Dehydration [Unknown]
  - Fatigue [Unknown]
  - Anxiety [Unknown]
  - Off label use [Unknown]
